FAERS Safety Report 4748692-1 (Version None)
Quarter: 2005Q3

REPORT INFORMATION
  Report Type: 
  Country: None (occurrence: None)
  Receive Date: 20050817
  Receipt Date: 20050808
  Transmission Date: 20060218
  Serious: Yes (Death, Other)
  Sender: FDA-Public Use
  Company Number: 2005112864

PATIENT
  Age: 70 Year
  Sex: Male

DRUGS (1)
  1. NORVASC [Suspect]
     Indication: ILL-DEFINED DISORDER

REACTIONS (6)
  - CARDIAC FAILURE [None]
  - DIABETES MELLITUS [None]
  - LEG AMPUTATION [None]
  - MYOCARDIAL INFARCTION [None]
  - ORGAN FAILURE [None]
  - WEIGHT DECREASED [None]
